FAERS Safety Report 6596574-5 (Version None)
Quarter: 2010Q1

REPORT INFORMATION
  Report Type: 
  Country: None (occurrence: None)
  Receive Date: 20100222
  Receipt Date: 20100222
  Transmission Date: 20100710
  Serious: Yes (Hospitalization)
  Sender: FDA-Public Use
  Company Number: None

PATIENT
  Sex: Female
  Weight: 80 kg

DRUGS (9)
  1. NEUPRO [Suspect]
     Indication: PARKINSON'S DISEASE
     Dosage: TRANSDERMAL, 2 MG QD TRANSDERMAL, 4 MG QD TRANSDERMAL, 6 MG QD TRANSDERMAL, 8 MG QD TRANSDERMAL
     Route: 062
     Dates: start: 20060714, end: 20060721
  2. NEUPRO [Suspect]
     Indication: PARKINSON'S DISEASE
     Dosage: TRANSDERMAL, 2 MG QD TRANSDERMAL, 4 MG QD TRANSDERMAL, 6 MG QD TRANSDERMAL, 8 MG QD TRANSDERMAL
     Route: 062
     Dates: start: 20060722, end: 20060728
  3. NEUPRO [Suspect]
     Indication: PARKINSON'S DISEASE
     Dosage: TRANSDERMAL, 2 MG QD TRANSDERMAL, 4 MG QD TRANSDERMAL, 6 MG QD TRANSDERMAL, 8 MG QD TRANSDERMAL
     Route: 062
     Dates: start: 20060729, end: 20061109
  4. NEUPRO [Suspect]
     Indication: PARKINSON'S DISEASE
     Dosage: TRANSDERMAL, 2 MG QD TRANSDERMAL, 4 MG QD TRANSDERMAL, 6 MG QD TRANSDERMAL, 8 MG QD TRANSDERMAL
     Route: 062
     Dates: start: 20061110, end: 20080731
  5. NEUPRO [Suspect]
     Indication: PARKINSON'S DISEASE
     Dosage: TRANSDERMAL, 2 MG QD TRANSDERMAL, 4 MG QD TRANSDERMAL, 6 MG QD TRANSDERMAL, 8 MG QD TRANSDERMAL
     Route: 062
     Dates: start: 20050419
  6. STALEVO 100 [Concomitant]
  7. SIFROL [Concomitant]
  8. MARCUMAR [Concomitant]
  9. GLIMEPIRIDE [Concomitant]

REACTIONS (2)
  - CONDITION AGGRAVATED [None]
  - PARKINSON'S DISEASE [None]
